FAERS Safety Report 8082670-2 (Version None)
Quarter: 2012Q1

REPORT INFORMATION
  Report Type: 
  Country: None (occurrence: None)
  Receive Date: 20120127
  Receipt Date: 20110226
  Transmission Date: 20120608
  Serious: Yes (Hospitalization)
  Sender: FDA-Public Use
  Company Number: US-ABBOTT-11P-163-0707535-00

PATIENT
  Sex: Female
  Weight: 76.272 kg

DRUGS (2)
  1. HUMIRA [Suspect]
     Indication: COLITIS ULCERATIVE
     Route: 058
     Dates: start: 20080501
  2. PROVENTIL [Concomitant]
     Indication: ASTHMA
     Dosage: RESCUE
     Route: 055

REACTIONS (6)
  - COLITIS ULCERATIVE [None]
  - DRUG INEFFECTIVE [None]
  - GASTROENTERITIS [None]
  - GASTRITIS EROSIVE [None]
  - LUNG NEOPLASM [None]
  - PNEUMONIA [None]
